FAERS Safety Report 24200576 (Version 1)
Quarter: 2024Q3

REPORT INFORMATION
  Report Type: Spontaneous
  Country: FR (occurrence: FR)
  Receive Date: 20240812
  Receipt Date: 20240812
  Transmission Date: 20241016
  Serious: Yes (Death)
  Sender: MYLAN
  Company Number: None

PATIENT
  Age: 95 Year
  Sex: Male
  Weight: 70.4 kg

DRUGS (6)
  1. LEVETIRACETAM [Suspect]
     Active Substance: LEVETIRACETAM
     Indication: Epilepsy
     Dosage: 1 GRAM, BID
     Route: 048
     Dates: start: 20180522, end: 20240126
  2. ALLOPURINOL [Suspect]
     Active Substance: ALLOPURINOL
     Indication: Hyperuricaemia
     Dosage: 100 MILLIGRAM, QD
     Route: 048
     Dates: start: 2022, end: 20240101
  3. PANTOPRAZOLE [Suspect]
     Active Substance: PANTOPRAZOLE
     Indication: Gastrooesophageal reflux disease
     Dosage: 40 MILLIGRAM, QD
     Route: 048
     Dates: start: 20180523, end: 20240108
  4. BETAHISTINE [Suspect]
     Active Substance: BETAHISTINE
     Indication: Product used for unknown indication
     Dosage: 1 DOSAGE FORM, Q8H
     Route: 048
     Dates: start: 2022, end: 20240103
  5. FOSINOPRIL [Suspect]
     Active Substance: FOSINOPRIL
     Indication: Hypertension
     Dosage: 10 MILLIGRAM, QD
     Route: 048
     Dates: start: 2018, end: 20240101
  6. DOLIPRANE [Concomitant]
     Active Substance: ACETAMINOPHEN
     Indication: Pain
     Dosage: 1 DOSAGE FORM
     Route: 048

REACTIONS (1)
  - Colitis [Fatal]

NARRATIVE: CASE EVENT DATE: 20231227
